FAERS Safety Report 20987342 (Version 1)
Quarter: 2022Q2

REPORT INFORMATION
  Report Type: Spontaneous
  Country: US (occurrence: US)
  Receive Date: 20220621
  Receipt Date: 20220621
  Transmission Date: 20220720
  Serious: Yes (Other)
  Sender: FDA-Public Use
  Company Number: US-MSNLABS-2022MSNLIT00693

PATIENT

DRUGS (3)
  1. DECITABINE [Suspect]
     Active Substance: DECITABINE
     Indication: Acute myeloid leukaemia
     Route: 065
  2. VENETOCLAX [Suspect]
     Active Substance: VENETOCLAX
     Indication: Acute myeloid leukaemia
     Route: 065
  3. POSACONAZOLE [Concomitant]
     Active Substance: POSACONAZOLE
     Route: 065

REACTIONS (5)
  - Tumour lysis syndrome [Unknown]
  - Therapeutic product effect incomplete [Unknown]
  - Gastrointestinal haemorrhage [Unknown]
  - Bacteraemia [Unknown]
  - Thrombocytopenia [Unknown]
